FAERS Safety Report 5075790-8 (Version None)
Quarter: 2006Q3

REPORT INFORMATION
  Report Type: 
  Country: None (occurrence: None)
  Receive Date: 20060809
  Receipt Date: 20060510
  Transmission Date: 20061208
  Serious: Yes (Death, Disabling)
  Sender: FDA-Public Use
  Company Number: A-US2004-08557

PATIENT
  Age: 61 Year
  Sex: Female
  Weight: 54.9 kg

DRUGS (9)
  1. FLOLAN [Suspect]
     Route: 042
     Dates: end: 20041101
  2. TRACLEER [Suspect]
     Dosage: 125MG TWICE PER DAY
     Route: 048
     Dates: start: 20040830, end: 20041101
  3. DEMADEX [Concomitant]
  4. PREDNISONE [Concomitant]
  5. COUMADIN [Concomitant]
  6. VIAGRA [Concomitant]
  7. ALLEGRA [Concomitant]
  8. ELAVIL [Concomitant]
  9. OXYCONTIN [Concomitant]

REACTIONS (3)
  - DYSPNOEA [None]
  - FATIGUE [None]
  - HYPERSENSITIVITY [None]
